FAERS Safety Report 9929867 (Version 1)
Quarter: 2014Q1

REPORT INFORMATION
  Report Type: Spontaneous
  Country: US (occurrence: US)
  Receive Date: 20140227
  Receipt Date: 20140227
  Transmission Date: 20141002
  Serious: No
  Sender: FDA-Public Use
  Company Number: US-GILEAD-2012-0062969

PATIENT
  Age: 47 Year
  Sex: Female

DRUGS (2)
  1. COMPLERA [Suspect]
     Indication: HIV INFECTION
     Dosage: 1 DF, QD
     Route: 048
     Dates: start: 20120814, end: 20120917
  2. COMPLERA [Suspect]
     Dosage: UNK
     Dates: start: 20121003

REACTIONS (2)
  - Pruritus generalised [Recovered/Resolved]
  - Rash macular [Recovered/Resolved]
